FAERS Safety Report 25263951 (Version 3)
Quarter: 2025Q4

REPORT INFORMATION
  Report Type: Spontaneous
  Country: US (occurrence: US)
  Receive Date: 20250502
  Receipt Date: 20251017
  Transmission Date: 20260117
  Serious: Yes (Other)
  Sender: MARINUS PHARMACEUTICALS
  Company Number: US-MARINUS PHARMACEUTICALS, INC.-MAR2025000088

PATIENT

DRUGS (6)
  1. ZTALMY [Suspect]
     Active Substance: GANAXOLONE
     Indication: Epilepsy
     Dosage: 12 MILLILITER, TID
     Route: 048
  2. FAMOTIDINE [Concomitant]
     Active Substance: FAMOTIDINE
     Indication: Product used for unknown indication
     Dosage: UNK
     Route: 065
  3. LACOSAMIDE [Concomitant]
     Active Substance: LACOSAMIDE
     Indication: Product used for unknown indication
     Dosage: UNK
     Route: 065
  4. PERAMPANEL [Concomitant]
     Active Substance: PERAMPANEL
     Indication: Product used for unknown indication
     Dosage: UNK
     Route: 065
  5. VITAMINS [Concomitant]
     Active Substance: VITAMINS
     Indication: Product used for unknown indication
     Dosage: UNK
     Route: 065
  6. MIRALAX [Concomitant]
     Active Substance: POLYETHYLENE GLYCOL 3350
     Indication: Product used for unknown indication
     Dosage: UNK
     Route: 065

REACTIONS (3)
  - Seizure [Unknown]
  - Treatment noncompliance [Unknown]
  - Drug ineffective [Unknown]

NARRATIVE: CASE EVENT DATE: 20250701
